FAERS Safety Report 7440363-6 (Version None)
Quarter: 2011Q2

REPORT INFORMATION
  Report Type: 
  Country: None (occurrence: None)
  Receive Date: 20110427
  Receipt Date: 20110414
  Transmission Date: 20111010
  Serious: Yes (Disabling)
  Sender: FDA-Public Use
  Company Number: US-MERCK-1104USA02069

PATIENT
  Age: 57 Year
  Sex: Female

DRUGS (4)
  1. PRAVACHOL [Concomitant]
     Route: 065
  2. CALCIUM (UNSPECIFIED) [Concomitant]
     Route: 065
  3. CLONAZEPAM [Concomitant]
     Route: 065
  4. FOSAMAX [Suspect]
     Indication: OSTEOPOROSIS
     Route: 048
     Dates: start: 20110405, end: 20110405

REACTIONS (2)
  - ARTHRALGIA [None]
  - ABASIA [None]
